FAERS Safety Report 19208385 (Version 1)
Quarter: 2021Q2

REPORT INFORMATION
  Report Type: Other
  Country: IE (occurrence: IE)
  Receive Date: 20210504
  Receipt Date: 20210504
  Transmission Date: 20210717
  Serious: Yes (Life-Threatening, Hospitalization, Other)
  Sender: FDA-Public Use
  Company Number: IE-INNOGENIX, LLC-2110170

PATIENT
  Age: 46 Year
  Sex: Female

DRUGS (1)
  1. BACLOFEN. [Suspect]
     Active Substance: BACLOFEN
     Indication: PRODUCT USED FOR UNKNOWN INDICATION
     Route: 065

REACTIONS (9)
  - Coma scale [Unknown]
  - Pupil fixed [Unknown]
  - Unresponsive to stimuli [Unknown]
  - Hypertension [Unknown]
  - Respiratory depression [Unknown]
  - Overdose [Unknown]
  - Toxicity to various agents [Unknown]
  - Areflexia [Unknown]
  - Seizure [Unknown]
